FAERS Safety Report 15588925 (Version 2)
Quarter: 2019Q1

REPORT INFORMATION
  Report Type: Spontaneous
  Country: PL (occurrence: PL)
  Receive Date: 20181106
  Receipt Date: 20190111
  Transmission Date: 20190417
  Serious: Yes (Death, Other)
  Sender: FDA-Public Use
  Company Number: PL-BRISTOL-MYERS SQUIBB COMPANY-BMS-2018-103496

PATIENT
  Age: 64 Year
  Sex: Female

DRUGS (1)
  1. NIVOLUMAB [Suspect]
     Active Substance: NIVOLUMAB
     Indication: MALIGNANT MELANOMA
     Dosage: 3 MG/KG, UNK
     Route: 065
     Dates: start: 20170811

REACTIONS (7)
  - Asthenia [Unknown]
  - Blood lactate dehydrogenase abnormal [Unknown]
  - Rash [Unknown]
  - Blood thyroid stimulating hormone abnormal [Unknown]
  - General physical health deterioration [Unknown]
  - Death [Fatal]
  - Oedema peripheral [Unknown]
